FAERS Safety Report 5332146-8 (Version None)
Quarter: 2007Q2

REPORT INFORMATION
  Report Type: 
  Country: None (occurrence: None)
  Receive Date: 20070521
  Receipt Date: 20070503
  Transmission Date: 20071010
  Serious: Yes (Disabling)
  Sender: FDA-Public Use
  Company Number: S07-FRA-02015-01

PATIENT
  Age: 57 Year
  Sex: Female

DRUGS (3)
  1. ESCITALOPRAM [Suspect]
     Indication: MAJOR DEPRESSION
     Dosage: 10 MG QD PO
     Route: 048
     Dates: start: 20050805, end: 20070410
  2. LORAZEPAM [Concomitant]
  3. NOCTAMIDE (LORMETAZEPAM) [Concomitant]

REACTIONS (1)
  - DERMOGRAPHISM [None]
